FAERS Safety Report 7659653-7 (Version None)
Quarter: 2011Q3

REPORT INFORMATION
  Report Type: 
  Country: None (occurrence: None)
  Receive Date: 20110805
  Receipt Date: 20110726
  Transmission Date: 20111222
  Serious: Yes (Hospitalization, Disabling, Other)
  Sender: FDA-Public Use
  Company Number: GB-GENZYME-THYM-1001833

PATIENT
  Sex: Male

DRUGS (15)
  1. ACYCLOVIR [Concomitant]
     Indication: HERPES VIRUS INFECTION
     Dosage: 200 MG, QD
     Route: 048
     Dates: start: 20100811, end: 20100902
  2. COLISTIN [Concomitant]
     Indication: PRODUCT USED FOR UNKNOWN INDICATION
     Dosage: 1.5 ML, QD
     Route: 048
     Dates: start: 20100818, end: 20100902
  3. METRONIDAZOLE [Concomitant]
     Indication: ANTI-INFECTIVE THERAPY
     Route: 065
  4. THYMOGLOBULIN [Suspect]
     Indication: APLASTIC ANAEMIA
     Dosage: 323.6 MG, QD
     Route: 042
     Dates: start: 20100819, end: 20100824
  5. OMEPRAZOLE [Concomitant]
     Indication: GASTROOESOPHAGEAL REFLUX DISEASE
     Dosage: 20 MG, QD
     Route: 048
     Dates: start: 20100826, end: 20100903
  6. ITRACONAZOLE [Concomitant]
     Indication: ASPERGILLOSIS
     Dosage: 200 MG, QD
     Route: 042
     Dates: start: 20100811, end: 20100902
  7. PIPERACILLIN AND TAZOBACTAM [Concomitant]
     Indication: ANTI-INFECTIVE THERAPY
     Route: 065
  8. TEICOPLANIN [Concomitant]
     Indication: ANTI-INFECTIVE THERAPY
     Route: 065
  9. CYCLOSPORINE [Suspect]
     Indication: PROPHYLAXIS AGAINST GRAFT VERSUS HOST DISEASE
     Dosage: 100 MG, QD
     Route: 048
     Dates: start: 20100819, end: 20100925
  10. HYDROCORTISONE [Concomitant]
     Indication: PRODUCT USED FOR UNKNOWN INDICATION
     Dosage: 100 MG, UNK
     Route: 042
     Dates: start: 20100902, end: 20100902
  11. NEOMYCIN [Concomitant]
     Indication: PRODUCT USED FOR UNKNOWN INDICATION
     Dosage: 500 MG, QD
     Route: 048
     Dates: start: 20100818, end: 20100902
  12. METHYLPREDNISOLONE [Concomitant]
     Indication: PRODUCT USED FOR UNKNOWN INDICATION
     Dosage: 80 MG, QD
     Route: 042
     Dates: start: 20100819, end: 20100824
  13. AMBISOME [Concomitant]
     Indication: ANTI-INFECTIVE THERAPY
     Route: 065
  14. CHLORPHENIRAMINE MALEATE [Concomitant]
     Indication: PRODUCT USED FOR UNKNOWN INDICATION
     Dosage: 8 MG, UNK
     Route: 042
     Dates: start: 20100818, end: 20100823
  15. AMIKACIN [Concomitant]
     Indication: ANTI-INFECTIVE THERAPY
     Route: 065

REACTIONS (9)
  - DIARRHOEA [None]
  - PLEURAL EFFUSION [None]
  - NEUTROPENIC SEPSIS [None]
  - CONVULSION [None]
  - PYREXIA [None]
  - STAPHYLOCOCCUS TEST POSITIVE [None]
  - FALL [None]
  - GRAFT VERSUS HOST DISEASE [None]
  - ACINETOBACTER TEST POSITIVE [None]
